FAERS Safety Report 17771350 (Version 1)
Quarter: 2020Q2

REPORT INFORMATION
  Report Type: Spontaneous
  Country: MX (occurrence: MX)
  Receive Date: 20200512
  Receipt Date: 20200512
  Transmission Date: 20200714
  Serious: Yes (Death, Other)
  Sender: FDA-Public Use
  Company Number: MX-ADVANZ PHARMA-202004004924

PATIENT

DRUGS (2)
  1. HYDROXYCHLOROQUINE [Suspect]
     Active Substance: HYDROXYCHLOROQUINE
     Indication: PRODUCT USE IN UNAPPROVED INDICATION
  2. HYDROXYCHLOROQUINE [Suspect]
     Active Substance: HYDROXYCHLOROQUINE
     Indication: COVID-19
     Dosage: 200 MG, BID
     Dates: start: 20200417, end: 20200421

REACTIONS (5)
  - Blood creatinine increased [Unknown]
  - Aspartate aminotransferase increased [Unknown]
  - Off label use [Unknown]
  - Death [Fatal]
  - Bilirubin conjugated abnormal [Unknown]

NARRATIVE: CASE EVENT DATE: 20200420
